FAERS Safety Report 20548343 (Version 10)
Quarter: 2022Q3

REPORT INFORMATION
  Report Type: Spontaneous
  Country: IL (occurrence: IL)
  Receive Date: 20220303
  Receipt Date: 20220722
  Transmission Date: 20221026
  Serious: Yes (Other)
  Sender: FDA-Public Use
  Company Number: IL-NOVARTISPH-NVSC2022IL050152

PATIENT
  Age: 24 Year
  Sex: Female

DRUGS (2)
  1. LEQVIO [Suspect]
     Active Substance: INCLISIRAN SODIUM
     Indication: Hypercholesterolaemia
     Dosage: 284 (UNIT NOT REPORTED))
     Route: 058
     Dates: start: 202201
  2. LEQVIO [Suspect]
     Active Substance: INCLISIRAN SODIUM
     Dosage: UNK
     Route: 065
     Dates: start: 202202

REACTIONS (10)
  - Gastrointestinal haemorrhage [Not Recovered/Not Resolved]
  - Thrombocytopenia [Not Recovered/Not Resolved]
  - Anaemia [Not Recovered/Not Resolved]
  - Haematochezia [Unknown]
  - Haemolysis [Unknown]
  - Haemorrhage [Unknown]
  - Paroxysmal nocturnal haemoglobinuria [Unknown]
  - Liver function test increased [Unknown]
  - Haematoma [Unknown]
  - Full blood count decreased [Unknown]

NARRATIVE: CASE EVENT DATE: 20220227
